FAERS Safety Report 9911782 (Version 1)
Quarter: 2014Q1

REPORT INFORMATION
  Report Type: Report from Study
  Country: BR (occurrence: BR)
  Receive Date: 20140219
  Receipt Date: 20140219
  Transmission Date: 20141002
  Serious: Yes (Death, Hospitalization, Other)
  Sender: FDA-Public Use
  Company Number: PHHY2014BR020215

PATIENT
  Sex: Male
  Weight: 60 kg

DRUGS (4)
  1. FORASEQ [Suspect]
     Indication: BRONCHITIS
     Dosage: 1 DF, Q12H
     Route: 055
  2. SPIRIVA [Concomitant]
     Indication: CHRONIC OBSTRUCTIVE PULMONARY DISEASE
     Dosage: UNK (3 OR 4 YEARS AGO)
  3. ALENIA [Concomitant]
     Indication: BRONCHITIS
     Dosage: UNK UKN, UNK
  4. CORTISONE [Concomitant]
     Indication: BRONCHITIS CHRONIC
     Dosage: UNK UKN, UNK

REACTIONS (5)
  - Multi-organ failure [Fatal]
  - Chronic obstructive pulmonary disease [Unknown]
  - Thrombosis [Unknown]
  - Infarction [Unknown]
  - Bronchitis chronic [Unknown]
